FAERS Safety Report 18301750 (Version 12)
Quarter: 2020Q4

REPORT INFORMATION
  Report Type: Report from Study
  Country: CH (occurrence: CH)
  Receive Date: 20200923
  Receipt Date: 20201201
  Transmission Date: 20210113
  Serious: Yes (Death, Life-Threatening, Hospitalization)
  Sender: FDA-Public Use
  Company Number: CH-EISAI MEDICAL RESEARCH-EC-2020-080976

PATIENT
  Age: 69 Year
  Sex: Male
  Weight: 61.2 kg

DRUGS (20)
  1. PREDNISONE. [Concomitant]
     Active Substance: PREDNISONE
     Dates: start: 20200730
  2. LENVATINIB [Suspect]
     Active Substance: LENVATINIB
     Indication: NON-SMALL CELL LUNG CANCER
     Dosage: STARTING DOSE AT 10 MG, FLUCTUATED DOSAGE
     Route: 048
     Dates: start: 20200211, end: 20200617
  3. IBUPROFEN. [Concomitant]
     Active Substance: IBUPROFEN
     Dates: start: 20200527
  4. HALDOL [Concomitant]
     Active Substance: HALOPERIDOL
     Dates: start: 20200714
  5. LENVATINIB [Suspect]
     Active Substance: LENVATINIB
     Route: 048
     Dates: start: 20200626, end: 20200703
  6. PEMBROLIZUMAB. [Suspect]
     Active Substance: PEMBROLIZUMAB
     Indication: NON-SMALL CELL LUNG CANCER
     Route: 041
     Dates: start: 20200211, end: 20200527
  7. BEPANTHEN [Concomitant]
     Dates: start: 20200317
  8. PALLADON [Concomitant]
     Active Substance: HYDROMORPHONE
     Dates: start: 20200714
  9. PEMBROLIZUMAB. [Suspect]
     Active Substance: PEMBROLIZUMAB
     Route: 041
     Dates: start: 20200618, end: 20200618
  10. PANTOZOL [Concomitant]
     Active Substance: PANTOPRAZOLE SODIUM
     Dates: start: 202001
  11. SIMVASTATIN. [Concomitant]
     Active Substance: SIMVASTATIN
     Dates: start: 202001
  12. TRANSIPEG [Concomitant]
     Dates: start: 202001
  13. NOVALGIN [Concomitant]
     Dates: start: 20200211
  14. BEPANTHEN [Concomitant]
     Dates: start: 20200317
  15. SYRUP OF FIGS [Concomitant]
     Dates: start: 20200611
  16. NOVALGIN [Concomitant]
     Dates: start: 20200303
  17. ASS CARDIO SPIRIG HC [Concomitant]
     Dates: start: 202001
  18. COSOPT [Concomitant]
     Active Substance: DORZOLAMIDE HYDROCHLORIDE\TIMOLOL MALEATE
     Dates: start: 20200211
  19. ENALAPRIL MALEATE. [Concomitant]
     Active Substance: ENALAPRIL MALEATE
     Dates: start: 202001
  20. VITAMINS [Concomitant]
     Active Substance: VITAMINS
     Dates: start: 20200211

REACTIONS (1)
  - Myocardial infarction [Fatal]

NARRATIVE: CASE EVENT DATE: 20200918
